FAERS Safety Report 8714856 (Version 2)
Quarter: 2013Q3

REPORT INFORMATION
  Report Type: Spontaneous
  Country: US (occurrence: US)
  Receive Date: 20120809
  Receipt Date: 20130705
  Transmission Date: 20140515
  Serious: Yes (Other)
  Sender: FDA-Public Use
  Company Number: US-BAYER-2012-079183

PATIENT
  Age: 49 Year
  Sex: Female
  Weight: 90.25 kg

DRUGS (20)
  1. GIANVI [Suspect]
     Dosage: UNK
     Dates: start: 201007, end: 201010
  2. YAZ [Suspect]
     Dosage: UNK
     Dates: start: 201007, end: 201010
  3. AUGMENTIN [Concomitant]
     Indication: SINUSITIS
     Dosage: 875 MG, BID
     Dates: start: 20101005
  4. AUGMENTIN [Concomitant]
     Indication: SINUSITIS
  5. NASONEX [Concomitant]
     Indication: SINUSITIS
     Dosage: 1 PUFF EACH NOSTRIL DAILY
     Route: 045
     Dates: start: 20101005
  6. NASONEX [Concomitant]
     Indication: SINUSITIS
  7. PSEUDOEPHEDRINE HCL W/GUAIFENESIN [Concomitant]
     Indication: SINUSITIS
     Dosage: UNK
     Dates: start: 20101005
  8. PSEUDOEPHEDRINE HCL W/GUAIFENESIN [Concomitant]
     Indication: SINUSITIS
  9. AMBIEN [Concomitant]
     Indication: SLEEP DISORDER
     Dosage: 10 MG, ONE NIGHTLY PRN
  10. ZOLPIDEM [Concomitant]
     Indication: SLEEP DISORDER
     Dosage: 10 MG, ONE NIGHTLY PRN
  11. CARBIDOPA W/LEVODOPA [Concomitant]
     Indication: RESTLESS LEGS SYNDROME
     Dosage: 25-100 MG
  12. METFORMIN HCL [Concomitant]
     Dosage: 1000 MG, UNK
  13. SYNTHROID [Concomitant]
     Dosage: 150 ?G, UNK
  14. LEVOTHYROXIN [Concomitant]
     Dosage: 150 ?G, UNK
  15. LIPITOR [Concomitant]
     Dosage: 40 MG, UNK
     Route: 048
  16. LANTUS [Concomitant]
     Dosage: UNK
     Route: 058
  17. XANAX [Concomitant]
     Dosage: 0.5 MG, 1 DAILY PRN
  18. PAXIL [Concomitant]
     Dosage: 40 MG, UNK
  19. PAROXETINE [Concomitant]
     Dosage: 40 MG, UNK
  20. MELOXICAM [Concomitant]
     Dosage: 7.5 MG, UNK

REACTIONS (8)
  - Deep vein thrombosis [None]
  - Injury [None]
  - Pain [None]
  - General physical health deterioration [None]
  - Emotional distress [None]
  - Anxiety [None]
  - Pain [None]
  - Off label use [None]
